FAERS Safety Report 6298497-8 (Version None)
Quarter: 2009Q3

REPORT INFORMATION
  Report Type: 
  Country: None (occurrence: None)
  Receive Date: 20090724
  Receipt Date: 20090518
  Transmission Date: 20100115
  Serious: Yes (Other)
  Sender: FDA-Public Use
  Company Number: 2007BI002637

PATIENT
  Age: 39 Year
  Sex: Female
  Weight: 63.5036 kg

DRUGS (3)
  1. TYSABRI [Suspect]
     Indication: MULTIPLE SCLEROSIS
     Dosage: 300 MG, QM; IV
     Route: 042
     Dates: start: 20050102, end: 20070208
  2. LEXAPRO [Concomitant]
  3. AVONEX [Concomitant]

REACTIONS (5)
  - ANAPHYLACTIC REACTION [None]
  - DYSPNOEA [None]
  - FATIGUE [None]
  - HEAD DISCOMFORT [None]
  - PALPITATIONS [None]
